FAERS Safety Report 14665926 (Version 1)
Quarter: 2018Q1

REPORT INFORMATION
  Report Type: Spontaneous
  Country: US (occurrence: US)
  Receive Date: 20180321
  Receipt Date: 20180321
  Transmission Date: 20180509
  Serious: No
  Sender: FDA-Public Use
  Company Number: US-009507513-1803USA008173

PATIENT
  Age: 49 Year
  Sex: Female
  Weight: 56.24 kg

DRUGS (1)
  1. NUVARING [Suspect]
     Active Substance: ETHINYL ESTRADIOL\ETONOGESTREL
     Indication: MENOPAUSE
     Dosage: IN FOR 3 WEEKS, REMOVE IT TO INSERT A NEW RING FOR THE NEXT 3 WEEKS
     Route: 067
     Dates: start: 20180209

REACTIONS (4)
  - Inappropriate schedule of drug administration [Unknown]
  - Depressed mood [Not Recovered/Not Resolved]
  - Product use in unapproved indication [Unknown]
  - Crying [Not Recovered/Not Resolved]

NARRATIVE: CASE EVENT DATE: 20180209
